FAERS Safety Report 7853701-7 (Version None)
Quarter: 2011Q4

REPORT INFORMATION
  Report Type: 
  Country: None (occurrence: None)
  Receive Date: 20111026
  Receipt Date: 20111017
  Transmission Date: 20120403
  Serious: Yes (Other)
  Sender: FDA-Public Use
  Company Number: US-ASTRAZENECA-2010SE56768

PATIENT
  Age: 62 Year
  Sex: Female
  Weight: 94.8 kg

DRUGS (2)
  1. NEXIUM [Suspect]
     Route: 048
  2. NEXIUM [Suspect]
     Route: 048

REACTIONS (10)
  - GASTRIC POLYPS [None]
  - HIATUS HERNIA [None]
  - DRUG DOSE OMISSION [None]
  - DYSPHAGIA [None]
  - CHOKING SENSATION [None]
  - GASTRIC MUCOSA ERYTHEMA [None]
  - LARYNGEAL INJURY [None]
  - GASTROOESOPHAGEAL REFLUX DISEASE [None]
  - OESOPHAGEAL HYPOMOTILITY [None]
  - INAPPROPRIATE SCHEDULE OF DRUG ADMINISTRATION [None]
